FAERS Safety Report 7568453-8 (Version None)
Quarter: 2011Q2

REPORT INFORMATION
  Report Type: 
  Country: None (occurrence: None)
  Receive Date: 20110623
  Receipt Date: 20110610
  Transmission Date: 20111010
  Serious: Yes (Other)
  Sender: FDA-Public Use
  Company Number: CH-ELI_LILLY_AND_COMPANY-CH201106000806

PATIENT
  Age: 53 Year
  Sex: Female
  Weight: 45 kg

DRUGS (9)
  1. TRIMIPRAMINE MALEATE [Concomitant]
     Indication: SLEEP DISORDER
     Dosage: 15-20 GTTS
     Route: 048
     Dates: start: 20070529, end: 20081201
  2. CYMBALTA [Suspect]
     Dosage: 60 MG, QOD
     Route: 048
     Dates: start: 20090109
  3. PRASTERONE [Concomitant]
     Indication: MENOPAUSAL SYMPTOMS
     Dosage: 0.5 DF, QD
     Route: 048
     Dates: start: 20081001
  4. CIMIFEMIN [Concomitant]
     Indication: MENOPAUSAL SYMPTOMS
     Dosage: UNK
     Dates: start: 20080801, end: 20091101
  5. CYMBALTA [Suspect]
     Dosage: 30 MG, QOD
     Route: 048
     Dates: start: 20090108
  6. CYMBALTA [Suspect]
     Dosage: 30 MG, QD
     Route: 048
  7. CYMBALTA [Suspect]
     Dosage: 30 MG, OTHER
     Route: 048
  8. CYMBALTA [Suspect]
     Indication: DEPRESSION
     Dosage: 60 MG, QD
     Route: 048
     Dates: start: 20071114, end: 20090107
  9. CYMBALTA [Suspect]
     Dosage: 30 MG, QOD
     Route: 048

REACTIONS (3)
  - DIZZINESS [None]
  - LOSS OF CONSCIOUSNESS [None]
  - DRUG WITHDRAWAL SYNDROME [None]
